FAERS Safety Report 8555170-0 (Version None)
Quarter: 2012Q3

REPORT INFORMATION
  Report Type: 
  Country: None (occurrence: None)
  Receive Date: 20120731
  Receipt Date: 20120718
  Transmission Date: 20120928
  Serious: Yes (Other)
  Sender: FDA-Public Use
  Company Number: GB-BAUSCH-BL-2012-000184

PATIENT
  Sex: Female
  Weight: 58 kg

DRUGS (12)
  1. LANSOPRAZOLE [Concomitant]
     Dates: start: 20120501, end: 20120529
  2. FOLIC ACID [Concomitant]
     Dates: start: 20120330
  3. METFORMIN [Concomitant]
     Dates: start: 20120330
  4. PREDNISOLONE [Suspect]
     Indication: TEMPORAL ARTERITIS
     Dosage: 60 MG DAILY
     Route: 065
     Dates: start: 20120501
  5. RANITIDINE [Concomitant]
     Dates: start: 20120502, end: 20120601
  6. CELECOXIB [Concomitant]
     Dates: start: 20120330, end: 20120429
  7. FEXOFENADINE HYDROCHLORIDE [Concomitant]
     Dates: start: 20120330, end: 20120429
  8. METHOTREXATE [Concomitant]
     Dates: start: 20120330
  9. ROSUVASTATIN [Concomitant]
     Dates: start: 20120330
  10. TIMOLOL MALEATE [Concomitant]
     Dates: start: 20120330
  11. ALENDRONIC ACID [Concomitant]
     Dates: start: 20120330
  12. CROMOGLICATE SODIUM [Concomitant]
     Dates: start: 20120330

REACTIONS (3)
  - DYSPEPSIA [None]
  - ABDOMINAL PAIN UPPER [None]
  - GASTROOESOPHAGEAL REFLUX DISEASE [None]
